FAERS Safety Report 4406208-3 (Version None)
Quarter: 2004Q3

REPORT INFORMATION
  Report Type: 
  Country: None (occurrence: None)
  Receive Date: 20040723
  Receipt Date: 20040514
  Transmission Date: 20050211
  Serious: No
  Sender: FDA-Public Use
  Company Number: US-GLAXOSMITHKLINE-A0510920A

PATIENT
  Age: 55 Year
  Sex: Female

DRUGS (3)
  1. AVANDIA [Suspect]
     Dosage: 8MG PER DAY
     Route: 048
     Dates: start: 20030801, end: 20040505
  2. GLIPIZIDE [Concomitant]
  3. INSULIN [Concomitant]

REACTIONS (2)
  - JOINT SWELLING [None]
  - WEIGHT INCREASED [None]
